FAERS Safety Report 8183504 (Version 2)
Quarter: 2013Q2

REPORT INFORMATION
  Report Type: Spontaneous
  Country: PL (occurrence: None)
  Receive Date: 20111005
  Receipt Date: 20130531
  Transmission Date: 20140414
  Serious: Yes (Other)
  Sender: FDA-Public Use
  Company Number: PL-JNJFOC-20110907904

PATIENT
  Age: 75 Year
  Sex: Male

DRUGS (5)
  1. DACOGEN [Suspect]
     Indication: ACUTE MYELOID LEUKAEMIA
     Dosage: 20 MG/M2, 1 IN 4 WEEK, INTRAVENOUS
     Route: 042
  2. AMOXICILLIN/CLAVULANIC ACID (AMOXI-CLAVULANICO) [Concomitant]
  3. FLUCONAZOLE [Concomitant]
  4. FRAXIPARIN (NADROPARIN CALCIUM) UNSPECIFIED [Concomitant]
  5. CEFTAZIDIME (CEFTAZIDIME) UNSPECIFIED [Concomitant]

REACTIONS (14)
  - PAIN IN EXTREMITY [None]
  - OEDEMA PERIPHERAL [None]
  - NEUTROPENIA [None]
  - SYNOVIAL RUPTURE [None]
  - PYREXIA [None]
  - ANAEMIA [None]
  - THROMBOCYTOPENIA [None]
  - JOINT SWELLING [None]
  - ARTHRITIS [None]
  - Candida infection [None]
  - ACUTE TONSILLITIS [None]
  - Pain in extremity [None]
  - Gait disturbance [None]
  - Arthritis infective [None]
